FAERS Safety Report 10071740 (Version 1)
Quarter: 2014Q2

REPORT INFORMATION
  Report Type: Report from Study
  Country: DE (occurrence: DE)
  Receive Date: 20140411
  Receipt Date: 20140411
  Transmission Date: 20141212
  Serious: Yes (Other)
  Sender: FDA-Public Use
  Company Number: DE-ROCHE-1381572

PATIENT
  Sex: Male

DRUGS (4)
  1. LUCENTIS [Suspect]
     Indication: AGE-RELATED MACULAR DEGENERATION
     Route: 050
     Dates: start: 20120620
  2. LUCENTIS [Suspect]
     Route: 050
     Dates: start: 20121114
  3. LUCENTIS [Suspect]
     Route: 050
     Dates: start: 20130313, end: 20130827
  4. FLOXAL [Concomitant]
     Route: 065
     Dates: start: 20120613

REACTIONS (3)
  - Age-related macular degeneration [Not Recovered/Not Resolved]
  - Disease progression [Not Recovered/Not Resolved]
  - Drug ineffective [Unknown]
